FAERS Safety Report 17628517 (Version 1)
Quarter: 2020Q2

REPORT INFORMATION
  Report Type: Report from Study
  Country: FR (occurrence: FR)
  Receive Date: 20200406
  Receipt Date: 20200406
  Transmission Date: 20200713
  Serious: Yes (Hospitalization, Other)
  Sender: FDA-Public Use
  Company Number: FR-INTERCEPT-PM2020000864

PATIENT
  Sex: Female
  Weight: 75 kg

DRUGS (8)
  1. HUMALOG [Concomitant]
     Active Substance: INSULIN LISPRO
     Dosage: UNK
  2. OBETICHOLIC ACID [Suspect]
     Active Substance: OBETICHOLIC ACID
     Indication: PRIMARY BILIARY CHOLANGITIS
     Dosage: 5 MG, QD
     Route: 048
     Dates: start: 20170118
  3. DELURSAN [Concomitant]
     Active Substance: URSODIOL
     Dosage: 1250 MG, UNK
     Dates: start: 2007
  4. METFORMIN [Concomitant]
     Active Substance: METFORMIN HYDROCHLORIDE
     Dosage: 850 MG, TID
  5. IRBESARTAN AND HYDROCHLOROTHIAZIDE [Concomitant]
     Active Substance: HYDROCHLOROTHIAZIDE\IRBESARTAN
     Dosage: UNK
  6. LANTUS [Concomitant]
     Active Substance: INSULIN GLARGINE
     Dosage: 30 IU, QD
  7. FUROSEMIDE. [Concomitant]
     Active Substance: FUROSEMIDE
     Dosage: 10 MG, QD
  8. OBETICHOLIC ACID [Suspect]
     Active Substance: OBETICHOLIC ACID
     Dosage: 10 MG, QD
     Route: 048

REACTIONS (12)
  - Gamma-glutamyltransferase increased [Unknown]
  - Leukopenia [Unknown]
  - Varices oesophageal [Unknown]
  - Headache [Unknown]
  - Oedema peripheral [Unknown]
  - Cystitis [Unknown]
  - Malaise [Unknown]
  - Portal hypertensive gastropathy [Unknown]
  - Faeces discoloured [Unknown]
  - Blood alkaline phosphatase increased [Unknown]
  - Thrombocytopenia [Unknown]
  - Iron deficiency anaemia [Unknown]

NARRATIVE: CASE EVENT DATE: 2017
